FAERS Safety Report 16763961 (Version 1)
Quarter: 2019Q3

REPORT INFORMATION
  Report Type: Spontaneous
  Country: CN (occurrence: CN)
  Receive Date: 20190902
  Receipt Date: 20190902
  Transmission Date: 20191005
  Serious: Yes (Other)
  Sender: FDA-Public Use
  Company Number: CN-ACTELION-A-CH2019-195036

PATIENT
  Age: 5 Month
  Weight: 5 kg

DRUGS (2)
  1. BOSENTAN. [Suspect]
     Active Substance: BOSENTAN
     Indication: CONGENITAL CARDIOVASCULAR ANOMALY
     Dosage: 10 MG, BID
     Route: 048
  2. ILOPROST. [Suspect]
     Active Substance: ILOPROST
     Indication: CONGENITAL CARDIOVASCULAR ANOMALY
     Dosage: 2500 NG, 6-8 TIMES, QD

REACTIONS (4)
  - Heart rate decreased [Unknown]
  - Pulmonary hypertensive crisis [Unknown]
  - Oxygen saturation immeasurable [Unknown]
  - Blood pressure decreased [Unknown]
